FAERS Safety Report 16068694 (Version 2)
Quarter: 2019Q4

REPORT INFORMATION
  Report Type: Spontaneous
  Country: US (occurrence: US)
  Receive Date: 20190313
  Receipt Date: 20191021
  Transmission Date: 20200122
  Serious: Yes (Hospitalization)
  Sender: FDA-Public Use
  Company Number: US-VERTEX PHARMACEUTICALS-2019-002055

PATIENT
  Age: 11 Year
  Sex: Female

DRUGS (1)
  1. ORKAMBI [Suspect]
     Active Substance: IVACAFTOR\LUMACAFTOR
     Indication: CYSTIC FIBROSIS
     Dosage: 2 TABLETS 100/125 MG, BID
     Route: 048
     Dates: start: 20170929

REACTIONS (4)
  - Infective pulmonary exacerbation of cystic fibrosis [Recovered/Resolved]
  - Staphylococcal infection [Recovered/Resolved]
  - Bronchiectasis [Unknown]
  - Constipation [Unknown]

NARRATIVE: CASE EVENT DATE: 2019
